FAERS Safety Report 26057861 (Version 1)
Quarter: 2025Q4

REPORT INFORMATION
  Report Type: Spontaneous
  Country: US (occurrence: US)
  Receive Date: 20251118
  Receipt Date: 20251118
  Transmission Date: 20260118
  Serious: No
  Sender: TARO
  Company Number: US-TARO PHARMACEUTICALS USA INC.-2025TAR00686

PATIENT

DRUGS (2)
  1. MUPIROCIN [Suspect]
     Active Substance: MUPIROCIN
     Indication: Infection
     Dosage: UNK, ONCE, 1/2 GRAM INSIDE - HALF OF A FINGER-TIP
     Route: 045
     Dates: start: 20250214
  2. OXYCODONE [Suspect]
     Active Substance: OXYCODONE
     Indication: Arthralgia
     Dosage: UNK
     Route: 065

REACTIONS (16)
  - Chills [Recovering/Resolving]
  - Tremor [Recovering/Resolving]
  - Periorbital inflammation [Unknown]
  - Skin swelling [Unknown]
  - Erythema [Unknown]
  - Madarosis [Unknown]
  - Lacrimation increased [Recovering/Resolving]
  - Dry eye [Unknown]
  - Dysgeusia [Recovering/Resolving]
  - Palpitations [Recovering/Resolving]
  - Dizziness [Recovering/Resolving]
  - Hypersensitivity [Unknown]
  - Nausea [Recovering/Resolving]
  - Eye irritation [Unknown]
  - Eye pain [Unknown]
  - Off label use [Unknown]

NARRATIVE: CASE EVENT DATE: 20250214
